FAERS Safety Report 9293635 (Version 1)
Quarter: 2013Q2

REPORT INFORMATION
  Report Type: Spontaneous
  Country: US (occurrence: US)
  Receive Date: 20130516
  Receipt Date: 20130516
  Transmission Date: 20140414
  Serious: Yes (Hospitalization)
  Sender: FDA-Public Use
  Company Number: US-OTSUKA-US-2013-10872

PATIENT
  Sex: Male

DRUGS (3)
  1. SAMSCA [Suspect]
     Indication: HYPONATRAEMIA
     Dosage: 7.5 MG MILLIGRAM(S), UNKNOWN
     Dates: start: 20130412, end: 20130416
  2. SAMSCA [Suspect]
     Dosage: 15 MG MILLIGRAM(S), QD
     Route: 048
  3. ANTICOAGULANT CIT PHOS DEX ADENINE [Concomitant]
     Dosage: UNK
     Dates: end: 201304

REACTIONS (2)
  - Epistaxis [Unknown]
  - Incorrect drug dosage form administered [Unknown]
